FAERS Safety Report 23636487 (Version 2)
Quarter: 2025Q3

REPORT INFORMATION
  Report Type: Spontaneous
  Country: US (occurrence: US)
  Receive Date: 20240315
  Receipt Date: 20250827
  Transmission Date: 20251021
  Serious: Yes (Death, Life-Threatening, Hospitalization, Other)
  Sender: PFIZER
  Company Number: US-PFIZER INC-PV202400033763

PATIENT
  Age: 2 Month
  Sex: Male

DRUGS (11)
  1. INFLIXIMAB [Suspect]
     Active Substance: INFLIXIMAB
     Indication: Kawasaki^s disease
  2. INFLIXIMAB [Suspect]
     Active Substance: INFLIXIMAB
     Indication: Coronary artery aneurysm
  3. METHYLPREDNISOLONE [Suspect]
     Active Substance: METHYLPREDNISOLONE
     Indication: COVID-19
  4. METHYLPREDNISOLONE [Suspect]
     Active Substance: METHYLPREDNISOLONE
     Indication: Kawasaki^s disease
  5. METHYLPREDNISOLONE [Suspect]
     Active Substance: METHYLPREDNISOLONE
     Indication: Coronary artery aneurysm
  6. ASPIRIN [Suspect]
     Active Substance: ASPIRIN
     Indication: Kawasaki^s disease
     Dosage: 40 MG/KG, 1X/DAY
  7. HUMAN IMMUNOGLOBULIN G [Suspect]
     Active Substance: HUMAN IMMUNOGLOBULIN G
     Indication: Kawasaki^s disease
     Route: 042
  8. AMLODIPINE [Suspect]
     Active Substance: AMLODIPINE BESYLATE
     Indication: Blood pressure measurement
  9. CLOPIDOGREL [Suspect]
     Active Substance: CLOPIDOGREL BISULFATE
     Indication: Coronary artery thrombosis
  10. CYCLOPHOSPHAMIDE [Suspect]
     Active Substance: CYCLOPHOSPHAMIDE
     Indication: Coronary artery aneurysm
  11. CARVEDILOL [Suspect]
     Active Substance: CARVEDILOL
     Indication: Blood pressure measurement

REACTIONS (1)
  - Drug ineffective [Fatal]
